FAERS Safety Report 21741038 (Version 2)
Quarter: 2022Q4

REPORT INFORMATION
  Report Type: Spontaneous
  Country: US (occurrence: US)
  Receive Date: 20221216
  Receipt Date: 20221221
  Transmission Date: 20230113
  Serious: Yes (Hospitalization)
  Sender: FDA-Public Use
  Company Number: US-AVEO ONCOLOGY-2022-AVEO-US000546

PATIENT

DRUGS (1)
  1. FOTIVDA [Suspect]
     Active Substance: TIVOZANIB HYDROCHLORIDE
     Indication: Renal cell carcinoma
     Dosage: 1.34 MG, DAILY FOR 21 DAYS WITH 7 DAYS OFF (28-DAY CYCLE)
     Route: 048
     Dates: start: 20221112, end: 202212

REACTIONS (5)
  - Back disorder [Unknown]
  - Dysphonia [Unknown]
  - Cough [Not Recovered/Not Resolved]
  - Dysphagia [Unknown]
  - Dry mouth [Unknown]

NARRATIVE: CASE EVENT DATE: 20220101
